FAERS Safety Report 7574029-9 (Version None)
Quarter: 2011Q2

REPORT INFORMATION
  Report Type: 
  Country: None (occurrence: None)
  Receive Date: 20110627
  Receipt Date: 20110620
  Transmission Date: 20111010
  Serious: Yes (Death)
  Sender: FDA-Public Use
  Company Number: JP-ACTELION-A-CH2011-44867

PATIENT
  Sex: Female
  Weight: 46 kg

DRUGS (22)
  1. TRACLEER [Suspect]
     Indication: PULMONARY HYPERTENSION
     Dosage: 62.5 MG, BID
     Route: 048
     Dates: start: 20090707, end: 20090711
  2. INSULIN GLARGINE [Concomitant]
  3. ROSUVASTATIN CALCIUM [Concomitant]
  4. SPIRONOLACTONE [Concomitant]
  5. BISOPROLOL FUMARATE [Concomitant]
  6. LOSARTAN POTASSIUM [Concomitant]
  7. MECOBALAMIN [Concomitant]
  8. VOGLIBOSE [Concomitant]
  9. FLUTICASONE PROPIONATE [Concomitant]
  10. CODEINE SULFATE [Concomitant]
  11. TULOBUTEROL [Concomitant]
  12. DEXTROMETHORPHAN HYDROBROMIDE [Concomitant]
  13. OXYGEN [Concomitant]
  14. TRACLEER [Suspect]
     Dosage: 62.5 MG, QD
     Route: 048
     Dates: start: 20090629, end: 20090706
  15. BROTIZOLAM [Concomitant]
  16. NICORANDIL [Concomitant]
  17. TEPRENONE [Concomitant]
  18. EPALRESTAT [Concomitant]
  19. WARFARIN SODIUM [Concomitant]
  20. ASPIRIN [Concomitant]
  21. MAGNESIUM OXIDE [Concomitant]
  22. FUROSEMIDE [Concomitant]

REACTIONS (4)
  - PULMONARY FIBROSIS [None]
  - PYREXIA [None]
  - DISEASE PROGRESSION [None]
  - LIVER DISORDER [None]
